FAERS Safety Report 5243364-1 (Version None)
Quarter: 2007Q1

REPORT INFORMATION
  Report Type: 
  Country: None (occurrence: None)
  Receive Date: 20061201
  Receipt Date: 20060820
  Transmission Date: 20070707
  Serious: No
  Sender: FDA-Public Use
  Company Number: 2006PV019734

PATIENT
  Age: 53 Year
  Sex: Male
  Weight: 181.4388 kg

DRUGS (6)
  1. BYETTA [Suspect]
     Indication: DIABETES MELLITUS NON-INSULIN-DEPENDENT
     Dosage: 120 MCG; QPM;SC
     Route: 058
     Dates: start: 20060801
  2. AVANDIA [Concomitant]
  3. GLIPIZIDE [Concomitant]
  4. NOVOLIN 50/50 [Concomitant]
  5. FENTANYL [Concomitant]
  6. VYTORIN [Concomitant]

REACTIONS (2)
  - FEELING JITTERY [None]
  - HYPOGLYCAEMIA [None]
